FAERS Safety Report 7083670-1 (Version None)
Quarter: 2010Q4

REPORT INFORMATION
  Report Type: 
  Country: None (occurrence: None)
  Receive Date: 20101104
  Receipt Date: 20101022
  Transmission Date: 20110411
  Serious: Yes (Hospitalization)
  Sender: FDA-Public Use
  Company Number: JP-ELI_LILLY_AND_COMPANY-JP201010006538

PATIENT
  Age: 53 Year

DRUGS (9)
  1. CYMBALTA [Suspect]
     Indication: DEPRESSION
     Dosage: 20 MG, DAILY (1/D)
     Route: 048
     Dates: start: 20100720
  2. ROHYPNOL [Concomitant]
     Dosage: 2 MG, DAILY (1/D)
     Route: 048
  3. MYSLEE [Concomitant]
     Dosage: 10 MG, DAILY (1/D)
     Route: 048
  4. PURSENNID /00571902/ [Concomitant]
     Dosage: 24 MG, DAILY (1/D)
     Route: 048
  5. ALOSENN                            /00476901/ [Concomitant]
     Dosage: 1 G, DAILY (1/D)
     Route: 048
  6. LUVOX [Concomitant]
     Dosage: 150 MG, DAILY (1/D)
     Route: 048
  7. TOFRANIL [Concomitant]
     Dosage: 75 MG, DAILY (1/D)
     Route: 048
  8. DEPAS [Concomitant]
     Dosage: 1.5 MG, DAILY (1/D)
     Route: 048
  9. MAGLAX [Concomitant]
     Dosage: 2 G, DAILY (1/D)
     Route: 048

REACTIONS (1)
  - DYSPNOEA [None]
